FAERS Safety Report 9306397 (Version 6)
Quarter: 2014Q1

REPORT INFORMATION
  Report Type: Report from Study
  Country: RU (occurrence: RU)
  Receive Date: 20130523
  Receipt Date: 20140310
  Transmission Date: 20141002
  Serious: Yes (Hospitalization)
  Sender: FDA-Public Use
  Company Number: RU-009507513-1305RUS010481

PATIENT
  Age: 24 Year
  Sex: Male
  Weight: 69 kg

DRUGS (10)
  1. BOCEPREVIR [Suspect]
     Indication: CHRONIC HEPATITIS C
     Dosage: 800 MG, MORNING
     Route: 048
     Dates: start: 20130212, end: 20130607
  2. BOCEPREVIR [Suspect]
     Dosage: 800 MG, AFTERNOON
     Route: 048
     Dates: start: 20130212, end: 20130607
  3. BOCEPREVIR [Suspect]
     Dosage: 800 MG, EVENING
     Route: 048
     Dates: start: 20130212, end: 20130606
  4. PEGASYS [Suspect]
     Indication: CHRONIC HEPATITIS C
     Dosage: 180 MICROGRAM, QW
     Route: 058
     Dates: start: 20130115, end: 20130409
  5. PEGASYS [Suspect]
     Dosage: 135 MICROGRAM, QW
     Route: 058
     Dates: start: 20130416, end: 20130528
  6. RIBAVIRIN [Suspect]
     Indication: CHRONIC HEPATITIS C
     Dosage: 2 DF AM AND 3 DF PM
     Route: 048
     Dates: start: 20130115, end: 20130224
  7. RIBAVIRIN [Suspect]
     Dosage: 3 DF PM
     Route: 048
     Dates: start: 20130225, end: 20130225
  8. RIBAVIRIN [Suspect]
     Dosage: 2 DF AM
     Route: 048
     Dates: start: 20130226, end: 20130607
  9. RIBAVIRIN [Suspect]
     Dosage: 3 DF PM
     Route: 048
     Dates: start: 20130226, end: 20130606
  10. ACETAMINOPHEN [Concomitant]
     Indication: PYREXIA
     Dosage: 1000MG DAILY, QD
     Route: 048
     Dates: start: 20130430, end: 20130501

REACTIONS (2)
  - Bronchitis viral [Recovered/Resolved]
  - Pneumonia [Recovered/Resolved]
